FAERS Safety Report 18517267 (Version 1)
Quarter: 2020Q4

REPORT INFORMATION
  Report Type: Spontaneous
  Country: US (occurrence: US)
  Receive Date: 20201118
  Receipt Date: 20201118
  Transmission Date: 20210114
  Serious: No
  Sender: FDA-Public Use
  Company Number: US-PFIZER INC-2020233553

PATIENT
  Age: 71 Year
  Sex: Female

DRUGS (2)
  1. IBRANCE [Suspect]
     Active Substance: PALBOCICLIB
     Dosage: 75 MG, CYCLIC (WHAT WOULD BE DAYS 22, 23, 24 INSTEAD OF HOLDING FOR HER 7 DAY OFF PERIOD)
     Dates: start: 20181201
  2. IBRANCE [Suspect]
     Active Substance: PALBOCICLIB
     Dosage: UNK
     Dates: start: 20190116

REACTIONS (2)
  - Neoplasm progression [Unknown]
  - Inappropriate schedule of product administration [Unknown]
